FAERS Safety Report 5044115-6 (Version None)
Quarter: 2006Q2

REPORT INFORMATION
  Report Type: 
  Country: None (occurrence: None)
  Receive Date: 20060601
  Receipt Date: 20060223
  Transmission Date: 20061013
  Serious: No
  Sender: FDA-Public Use
  Company Number: 2006PV009211

PATIENT
  Age: 45 Year
  Sex: Male
  Weight: 117.028 kg

DRUGS (4)
  1. BYETTA [Suspect]
     Indication: DIABETES MELLITUS NON-INSULIN-DEPENDENT
     Dosage: 5 MCG;BID;SC
     Route: 058
     Dates: start: 20060211, end: 20060222
  2. GLUCOPHAGE [Suspect]
     Dosage: 500 MG
     Dates: start: 20060213, end: 20060213
  3. AMBIEN [Concomitant]
  4. VALIUM [Concomitant]

REACTIONS (12)
  - ABDOMINAL DISTENSION [None]
  - ASTHMA [None]
  - BLOOD GLUCOSE INCREASED [None]
  - DECREASED APPETITE [None]
  - DIARRHOEA HAEMORRHAGIC [None]
  - DYSPNOEA [None]
  - HEADACHE [None]
  - INJECTION SITE PAIN [None]
  - RASH PRURITIC [None]
  - URINE OUTPUT DECREASED [None]
  - VOMITING [None]
  - WEIGHT DECREASED [None]
